FAERS Safety Report 9605304 (Version 1)
Quarter: 2013Q4

REPORT INFORMATION
  Report Type: Spontaneous
  Country: GB (occurrence: GB)
  Receive Date: 20131008
  Receipt Date: 20131008
  Transmission Date: 20140711
  Serious: Yes (Other)
  Sender: FDA-Public Use
  Company Number: GB-TEVA-436042ISR

PATIENT
  Age: 58 Year
  Sex: Female

DRUGS (1)
  1. AMLODIPINE [Suspect]
     Indication: HYPERTENSION
     Route: 048
     Dates: start: 20130823, end: 20130902

REACTIONS (4)
  - Vasculitis [Recovered/Resolved]
  - Rash erythematous [Recovered/Resolved]
  - Cutaneous vasculitis [Recovered/Resolved]
  - Skin oedema [Recovered/Resolved]
